FAERS Safety Report 10671424 (Version 1)
Quarter: 2014Q4

REPORT INFORMATION
  Report Type: Spontaneous
  Country: IT (occurrence: IT)
  Receive Date: 20141223
  Receipt Date: 20141223
  Transmission Date: 20150529
  Serious: Yes (Other)
  Sender: FDA-Public Use
  Company Number: IT-MYLANLABS-2014M1015283

PATIENT

DRUGS (4)
  1. BORTEZOMIB [Suspect]
     Active Substance: BORTEZOMIB
     Indication: B PRECURSOR TYPE ACUTE LEUKAEMIA
     Dosage: 1,3 MG/MQ DAYS +8, +11, +15 AND +18
     Route: 042
  2. CRISANTASPASE [Suspect]
     Active Substance: ASPARAGINASE ERWINIA CHRYSANTHEMI
     Indication: B PRECURSOR TYPE ACUTE LEUKAEMIA
     Dosage: 20.000 UI/MQ DAYS +1, +3, +5, +8, +10, +12, +15
     Route: 042
  3. DEXAMETHASONE. [Suspect]
     Active Substance: DEXAMETHASONE
     Indication: B PRECURSOR TYPE ACUTE LEUKAEMIA
     Dosage: 10 MG/MQ/DAY FOR 14 DAYS
     Route: 042
  4. VINCRISTINE [Suspect]
     Active Substance: VINCRISTINE
     Indication: B PRECURSOR TYPE ACUTE LEUKAEMIA
     Dosage: 1,5 MG/MQ IN 1 HOUR INFUSION DAYS +8, +15
     Route: 041

REACTIONS (1)
  - Neurotoxicity [Unknown]
